FAERS Safety Report 13618980 (Version 1)
Quarter: 2017Q2

REPORT INFORMATION
  Report Type: Spontaneous
  Country: US (occurrence: US)
  Receive Date: 20170606
  Receipt Date: 20170606
  Transmission Date: 20170830
  Serious: No
  Sender: FDA-Public Use
  Company Number: US-AMGEN-USASP2017065367

PATIENT
  Sex: Male
  Weight: 90.7 kg

DRUGS (1)
  1. PROCRIT [Suspect]
     Active Substance: ERYTHROPOIETIN
     Indication: CHRONIC KIDNEY DISEASE
     Dosage: 20000 UNIT, QWK
     Route: 065
     Dates: start: 2016

REACTIONS (2)
  - Fatigue [Not Recovered/Not Resolved]
  - Transferrin saturation decreased [Unknown]

NARRATIVE: CASE EVENT DATE: 201704
